FAERS Safety Report 14497626 (Version 3)
Quarter: 2018Q2

REPORT INFORMATION
  Report Type: Report from Study
  Country: FR (occurrence: FR)
  Receive Date: 20180207
  Receipt Date: 20180424
  Transmission Date: 20180711
  Serious: Yes (Hospitalization)
  Sender: FDA-Public Use
  Company Number: PHHY2018FR015734

PATIENT
  Age: 71 Year
  Sex: Female
  Weight: 84 kg

DRUGS (6)
  1. LETROZOLE. [Suspect]
     Active Substance: LETROZOLE
     Dosage: UNK
     Route: 065
     Dates: start: 20171121
  2. AQUACEL [Concomitant]
     Active Substance: CARBOXYMETHYLCELLULOSE SODIUM
     Indication: BLISTER
     Dosage: UNK
     Route: 065
  3. JELONET [Concomitant]
     Indication: BLISTER
     Dosage: UNK
     Route: 065
     Dates: start: 20170306
  4. LETROZOLE. [Suspect]
     Active Substance: LETROZOLE
     Indication: BREAST CANCER METASTATIC
     Dosage: UNK
     Route: 065
     Dates: start: 20150828
  5. EFFERALGAN [Concomitant]
     Active Substance: ACETAMINOPHEN
     Indication: BLISTER
     Dosage: UNK
     Route: 065
     Dates: start: 20170503
  6. FUSIDINE [Concomitant]
     Indication: BLISTER
     Dosage: UNK
     Route: 065
     Dates: start: 20170628

REACTIONS (2)
  - Impaired healing [Unknown]
  - Skin ulcer [Recovered/Resolved with Sequelae]

NARRATIVE: CASE EVENT DATE: 201703
